FAERS Safety Report 10177233 (Version 2)
Quarter: 2014Q2

REPORT INFORMATION
  Report Type: Spontaneous
  Country: JP (occurrence: JP)
  Receive Date: 20140516
  Receipt Date: 20140526
  Transmission Date: 20141212
  Serious: Yes (Life-Threatening, Hospitalization, Other)
  Sender: FDA-Public Use
  Company Number: JP-009507513-1405JPN007462

PATIENT
  Age: 64 Year
  Sex: Male

DRUGS (9)
  1. FOSAPREPITANT DIMEGLUMINE [Suspect]
     Indication: PROPHYLAXIS OF NAUSEA AND VOMITING
     Dosage: 150 MG, UNK
     Route: 041
     Dates: start: 20140509, end: 20140509
  2. CISPLATIN [Concomitant]
     Dosage: UNK
  3. TS-1 [Concomitant]
     Dosage: UNK, QD
  4. ALOXI [Concomitant]
     Dosage: UNK
     Dates: start: 20140509, end: 20140509
  5. DEXART [Concomitant]
     Dosage: UNK
     Dates: start: 20140509, end: 20140509
  6. KN NO. 1 [Concomitant]
     Dosage: UNK
     Dates: start: 20140509, end: 20140509
  7. POTASSIUM CHLORIDE [Concomitant]
     Dosage: UNK
     Dates: start: 20140509, end: 20140509
  8. LANSOPRAZOLE [Concomitant]
  9. FERROMIA [Concomitant]

REACTIONS (1)
  - Anaphylactic shock [Recovered/Resolved]
